FAERS Safety Report 8763803 (Version 1)
Quarter: 2012Q4

REPORT INFORMATION
  Report Type: 
  Country: FR (occurrence: FR)
  Receive Date: 20120830
  Receipt Date: 20120830
  Transmission Date: 20130627
  Serious: Yes (Life-Threatening)
  Sender: FDA-Public Use
  Company Number: FR-PFIZER INC-2012209502

PATIENT
  Age: 77 Year
  Sex: Female

DRUGS (14)
  1. DALACINE [Suspect]
     Indication: MUSCLE ABSCESS
     Dosage: 600 mg, 3x/day
     Route: 048
     Dates: start: 20120607
  2. FLUCONAZOLE [Suspect]
     Indication: FUNGAL INFECTION
     Dosage: 50 mg, alternate day in the evening
     Route: 048
     Dates: start: 201206, end: 20120702
  3. COLCHICINE [Suspect]
     Indication: GOUT
     Dosage: 1 DF, 1x/day
     Route: 048
     Dates: start: 20120627, end: 20120704
  4. DUPHALAC [Suspect]
     Dosage: 2 DF, as needed
  5. FUROSEMIDE [Suspect]
     Dosage: 80 mg, 1x/day
     Route: 048
     Dates: end: 20120704
  6. FUCIDIN [Suspect]
     Indication: MUSCLE ABSCESS
     Dosage: 500 mg, 3x/day
     Route: 048
     Dates: start: 201206
  7. ZOLPIDEM [Concomitant]
     Dosage: 5 mg, 1x/day
  8. SERESTA [Concomitant]
     Dosage: 10 mg, 2x/day
  9. MIANSERIN [Concomitant]
     Dosage: 60 mg, 1x/day
  10. PANTOPRAZOLE [Concomitant]
     Dosage: 20 mg, 1x/day
  11. DAFALGAN [Concomitant]
     Dosage: 1 g, 3x/day
  12. ECONAZOLE [Concomitant]
     Dosage: 1 DF, 1x/day
     Route: 003
     Dates: start: 201206
  13. ACUPAN [Concomitant]
     Dosage: 20 mg, 2x/day
     Route: 048
     Dates: start: 20120702, end: 20120704
  14. DOLIPRANE [Concomitant]

REACTIONS (3)
  - Diarrhoea [Recovered/Resolved]
  - Metabolic acidosis [Recovered/Resolved]
  - Renal failure chronic [Recovered/Resolved]
